FAERS Safety Report 17959432 (Version 2)
Quarter: 2020Q4

REPORT INFORMATION
  Report Type: Spontaneous
  Country: JP (occurrence: JP)
  Receive Date: 20200629
  Receipt Date: 20201001
  Transmission Date: 20210113
  Serious: Yes (Hospitalization)
  Sender: FDA-Public Use
  Company Number: JP-FERRINGPH-2020FE04009

PATIENT
  Age: 11 Year
  Sex: Male
  Weight: 33 kg

DRUGS (2)
  1. MINIRINMELT [Suspect]
     Active Substance: DESMOPRESSIN ACETATE
     Indication: ENURESIS
     Dosage: 120 UG, 2 TIMES DAILY
     Route: 060
     Dates: start: 20171221
  2. MINIRINMELT [Suspect]
     Active Substance: DESMOPRESSIN ACETATE
     Dosage: 120 UG, 1 TIME DAILY
     Route: 060
     Dates: start: 20171215

REACTIONS (2)
  - Salivary gland calculus [Recovered/Resolved]
  - Salivary gland calculus [Unknown]

NARRATIVE: CASE EVENT DATE: 20191004
